FAERS Safety Report 7940806-5 (Version None)
Quarter: 2011Q4

REPORT INFORMATION
  Report Type: 
  Country: None (occurrence: None)
  Receive Date: 20111128
  Receipt Date: 20111123
  Transmission Date: 20120403
  Serious: Yes (Hospitalization)
  Sender: FDA-Public Use
  Company Number: NO-PFIZER INC-2011287649

PATIENT
  Age: 75 Year
  Sex: Female

DRUGS (1)
  1. SUTENT [Suspect]
     Indication: METASTATIC RENAL CELL CARCINOMA
     Dosage: 37.5 MG, UNK

REACTIONS (7)
  - ASTHENIA [None]
  - STOMATITIS [None]
  - DEHYDRATION [None]
  - BLOOD CREATININE INCREASED [None]
  - HYPOPHAGIA [None]
  - ATRIAL FIBRILLATION [None]
  - FATIGUE [None]
